FAERS Safety Report 5659324-2 (Version None)
Quarter: 2008Q1

REPORT INFORMATION
  Report Type: 
  Country: None (occurrence: None)
  Receive Date: 20080201
  Receipt Date: 20050118
  Transmission Date: 20080703
  Serious: Yes (Hospitalization)
  Sender: FDA-Public Use
  Company Number: 20074383

PATIENT
  Sex: Male

DRUGS (4)
  1. LIORESAL [Suspect]
     Indication: MUSCLE SPASTICITY
     Dosage: 40 MCG, DAILY, INTRATHECAL
     Route: 037
  2. MORPHINE [Concomitant]
  3. CLONIDINE [Concomitant]
  4. LIDOCAINE [Concomitant]

REACTIONS (3)
  - DRUG INEFFECTIVE [None]
  - HYPOTONIA [None]
  - PAIN [None]
